FAERS Safety Report 24886032 (Version 2)
Quarter: 2025Q3

REPORT INFORMATION
  Report Type: Spontaneous
  Country: US (occurrence: US)
  Receive Date: 20250125
  Receipt Date: 20250815
  Transmission Date: 20251020
  Serious: No
  Sender: UNITED THERAPEUTICS
  Company Number: US-UNITED THERAPEUTICS-UNT-2025-001837

PATIENT

DRUGS (2)
  1. TYVASO [Suspect]
     Active Substance: TREPROSTINIL
     Indication: Idiopathic pulmonary fibrosis
  2. TYVASO [Suspect]
     Active Substance: TREPROSTINIL

REACTIONS (4)
  - Idiopathic pulmonary fibrosis [Unknown]
  - Product communication issue [Unknown]
  - Patient dissatisfaction with device [Unknown]
  - Off label use [Unknown]
